FAERS Safety Report 14579139 (Version 1)
Quarter: 2018Q1

REPORT INFORMATION
  Report Type: Spontaneous
  Country: US (occurrence: US)
  Receive Date: 20180227
  Receipt Date: 20180227
  Transmission Date: 20180509
  Serious: Yes (Hospitalization)
  Sender: FDA-Public Use
  Company Number: US-PFIZER INC-2018076883

PATIENT
  Age: 6 Month
  Sex: Male

DRUGS (2)
  1. GENOTROPIN MQ [Suspect]
     Active Substance: SOMATROPIN
     Indication: PRADER-WILLI SYNDROME
     Dosage: 0.6 MG, 1X/DAY (0.6MG INJECTION ONCE A DAY AT NIGHT)
     Dates: start: 201709, end: 20180216
  2. LEVOTHYROXINE. [Concomitant]
     Active Substance: LEVOTHYROXINE
     Indication: THYROID DISORDER
     Dosage: 12.5 UG, UNK (12.5MCG EVERY MORNING, SO IT IS HALF OF A 25MCG PILL.)

REACTIONS (2)
  - Metapneumovirus infection [Not Recovered/Not Resolved]
  - Nasopharyngitis [Unknown]

NARRATIVE: CASE EVENT DATE: 20180219
